FAERS Safety Report 23694612 (Version 1)
Quarter: 2024Q2

REPORT INFORMATION
  Report Type: Spontaneous
  Country: US (occurrence: US)
  Receive Date: 20240402
  Receipt Date: 20240402
  Transmission Date: 20240717
  Serious: No
  Sender: FDA-Public Use
  Company Number: US-SA-SAC20240329000146

PATIENT
  Sex: Female
  Weight: 104.31 kg

DRUGS (3)
  1. DUPIXENT [Suspect]
     Active Substance: DUPILUMAB
     Dosage: 300 MG, QOW
     Route: 058
  2. DUPIXENT [Suspect]
     Active Substance: DUPILUMAB
     Dosage: MEDICATION WAS RESTARTED
  3. ENBREL [Concomitant]
     Active Substance: ETANERCEPT

REACTIONS (1)
  - Peripheral swelling [Unknown]
